FAERS Safety Report 4402798-5 (Version None)
Quarter: 2004Q3

REPORT INFORMATION
  Report Type: 
  Country: None (occurrence: None)
  Receive Date: 20040721
  Receipt Date: 20040303
  Transmission Date: 20050211
  Serious: No
  Sender: FDA-Public Use
  Company Number: US-BRISTOL-MYERS SQUIBB COMPANY-12523270

PATIENT
  Age: 47 Year
  Sex: Male
  Weight: 86 kg

DRUGS (3)
  1. ZERIT [Suspect]
     Indication: HIV INFECTION
     Route: 048
  2. VIREAD [Concomitant]
  3. KALETRA [Concomitant]

REACTIONS (2)
  - BLOOD PROLACTIN INCREASED [None]
  - LOWER LIMB FRACTURE [None]
